FAERS Safety Report 10032279 (Version 3)
Quarter: 2014Q2

REPORT INFORMATION
  Report Type: Spontaneous
  Country: BR (occurrence: BR)
  Receive Date: 20140324
  Receipt Date: 20140623
  Transmission Date: 20141212
  Serious: Yes (Disabling)
  Sender: FDA-Public Use
  Company Number: BR-UCBSA-115099

PATIENT
  Age: 44 Year
  Sex: Female
  Weight: 49 kg

DRUGS (3)
  1. CIMZIA [Suspect]
     Indication: RHEUMATOID ARTHRITIS
     Dosage: 200MG/ML; SECOND APPLICATION ON 15-FEB-2014
     Route: 058
     Dates: start: 20140205
  2. DIPYRONE [Concomitant]
  3. PREDNISONE [Concomitant]

REACTIONS (9)
  - Swelling face [Recovered/Resolved]
  - Pain in extremity [Recovered/Resolved]
  - Nausea [Not Recovered/Not Resolved]
  - Face injury [Not Recovered/Not Resolved]
  - Hypersensitivity [Unknown]
  - Malaise [Unknown]
  - Confusional state [Unknown]
  - Gingival injury [Not Recovered/Not Resolved]
  - Inappropriate schedule of drug administration [Unknown]
